FAERS Safety Report 20682178 (Version 2)
Quarter: 2022Q2

REPORT INFORMATION
  Report Type: Spontaneous
  Country: US (occurrence: US)
  Receive Date: 20220407
  Receipt Date: 20220425
  Transmission Date: 20220721
  Serious: Yes (Hospitalization, Other)
  Sender: FDA-Public Use
  Company Number: US-BRISTOL-MYERS SQUIBB COMPANY-2022-014323

PATIENT
  Age: 64 Year
  Sex: Female
  Weight: 72.57 kg

DRUGS (1)
  1. REVLIMID [Suspect]
     Active Substance: LENALIDOMIDE
     Indication: Plasma cell myeloma
     Dosage: 10 MILLIGRAM, FREQ- 2W ON 1W OFF
     Route: 048
     Dates: start: 202107, end: 20220407

REACTIONS (8)
  - Visual impairment [Unknown]
  - Dehydration [Unknown]
  - Dizziness [Unknown]
  - Fatigue [Unknown]
  - Speech disorder [Unknown]
  - Feeling abnormal [Unknown]
  - Ischaemic stroke [Unknown]
  - Alopecia [Unknown]

NARRATIVE: CASE EVENT DATE: 20220405
